FAERS Safety Report 10393147 (Version 4)
Quarter: 2015Q1

REPORT INFORMATION
  Report Type: Spontaneous
  Country: US (occurrence: US)
  Receive Date: 20140819
  Receipt Date: 20150206
  Transmission Date: 20150720
  Serious: No
  Sender: FDA-Public Use
  Company Number: US-PFIZER INC-2014228224

PATIENT
  Age: 70 Year
  Sex: Female
  Weight: 100 kg

DRUGS (14)
  1. OMEGA ESSENTIALS [Concomitant]
     Dosage: 1 DF, 2X/DAY
     Route: 048
  2. IRON [Concomitant]
     Active Substance: IRON
     Dosage: 1 DF, DAILY
     Route: 048
  3. ZINC [Concomitant]
     Active Substance: ZINC\ZINC CHLORIDE
     Dosage: 140 MG, DAILY
     Route: 048
  4. LOSARTAN [Concomitant]
     Active Substance: LOSARTAN
     Dosage: 50 MG, DAILY
     Route: 048
  5. ESTRING [Suspect]
     Active Substance: ESTRADIOL
     Indication: VULVOVAGINAL DRYNESS
     Dosage: UNK
     Route: 067
     Dates: start: 201309, end: 201406
  6. CELEXA [Concomitant]
     Active Substance: CITALOPRAM HYDROBROMIDE
     Dosage: 40 MG, DAILY
     Route: 048
  7. MIRALAX [Concomitant]
     Active Substance: POLYETHYLENE GLYCOL 3350
     Dosage: 17 G, DAILY
  8. CARVEDILOL. [Concomitant]
     Active Substance: CARVEDILOL
     Dosage: 12.5 MG, 2X/DAY
     Route: 048
  9. EFFEXOR [Concomitant]
     Active Substance: VENLAFAXINE HYDROCHLORIDE
     Dosage: 150 MG, UNK
  10. VITAMIN C [Concomitant]
     Active Substance: ASCORBIC ACID
     Dosage: UNK
  11. CALCIUM 600+D [Concomitant]
     Active Substance: CALCIUM\VITAMIN D
     Dosage: 1 DF, 3X/DAY
     Route: 048
  12. VITAMIN B12 [Concomitant]
     Active Substance: CYANOCOBALAMIN
     Dosage: UNK
  13. FOLIC ACID. [Concomitant]
     Active Substance: FOLIC ACID
     Dosage: UNK, DAILY
  14. ANUCORT-HC [Concomitant]
     Active Substance: HYDROCORTISONE ACETATE
     Dosage: 25 MG, 2X/DAY
     Route: 054

REACTIONS (7)
  - Vaginitis gardnerella [Unknown]
  - Hypersensitivity [Unknown]
  - Fungal infection [Recovered/Resolved]
  - Erythema [Unknown]
  - Hot flush [Unknown]
  - Rash [Unknown]
  - Dermatitis contact [Recovered/Resolved]

NARRATIVE: CASE EVENT DATE: 201401
